FAERS Safety Report 9333007 (Version 2)
Quarter: 2014Q2

REPORT INFORMATION
  Report Type: Spontaneous
  Country: US (occurrence: US)
  Receive Date: 20130606
  Receipt Date: 20140429
  Transmission Date: 20141212
  Serious: No
  Sender: FDA-Public Use
  Company Number: US-PFIZER INC-2013171412

PATIENT
  Age: 51 Year
  Sex: Male
  Weight: 99.77 kg

DRUGS (9)
  1. LYRICA [Suspect]
     Indication: NEURALGIA
     Dosage: 200 MG, 3X/DAY (ONE)
  2. LYRICA [Suspect]
     Dosage: UNK
     Dates: start: 2012
  3. LYRICA [Suspect]
     Dosage: UNK
  4. VIAGRA [Suspect]
     Dosage: UNK
  5. LITHIUM CARBONATE [Concomitant]
     Dosage: UNK
  6. DIAZEM [Concomitant]
     Dosage: UNK
  7. CYMBALTA [Concomitant]
     Dosage: UNK
  8. ASPIRIN [Concomitant]
     Dosage: UNK
  9. METHADONE [Concomitant]
     Dosage: UNK

REACTIONS (2)
  - Sciatica [Unknown]
  - Neuropathy peripheral [Unknown]
